FAERS Safety Report 10310603 (Version 2)
Quarter: 2014Q4

REPORT INFORMATION
  Report Type: Spontaneous
  Country: FR (occurrence: FR)
  Receive Date: 20140717
  Receipt Date: 20141104
  Transmission Date: 20150528
  Serious: Yes (Hospitalization)
  Sender: FDA-Public Use
  Company Number: FR-PFIZER INC-2014192184

PATIENT
  Age: 19 Year
  Sex: Female

DRUGS (7)
  1. PARACETAMOL [Concomitant]
     Active Substance: ACETAMINOPHEN
     Dosage: UNK
     Dates: start: 20140616, end: 20140616
  2. DEBRIDAT ^IBRAHIM^ [Concomitant]
     Dosage: UNK
     Dates: start: 20140613
  3. ZITHROMAX [Suspect]
     Active Substance: AZITHROMYCIN DIHYDRATE
     Dosage: 250 MG, 1X/DAY
     Route: 048
     Dates: start: 20140620, end: 20140622
  4. IBUPROFEN. [Suspect]
     Active Substance: IBUPROFEN
     Indication: HEADACHE
     Dosage: SINGLE DOSE
     Route: 048
     Dates: start: 20140616, end: 20140616
  5. ZITHROMAX [Suspect]
     Active Substance: AZITHROMYCIN DIHYDRATE
     Indication: TONSILLITIS
     Dosage: 500 MG, DAILY
     Route: 048
     Dates: start: 20140619, end: 20140619
  6. STRESAM [Concomitant]
     Active Substance: ETIFOXINE
  7. LOMEXIN ^EFFIK^ [Concomitant]
     Dosage: UNK
     Dates: start: 20140619

REACTIONS (1)
  - Dermatitis exfoliative [Recovering/Resolving]

NARRATIVE: CASE EVENT DATE: 20140620
